FAERS Safety Report 7730058-3 (Version None)
Quarter: 2011Q3

REPORT INFORMATION
  Report Type: 
  Country: None (occurrence: None)
  Receive Date: 20110906
  Receipt Date: 20110826
  Transmission Date: 20111222
  Serious: Yes (Hospitalization)
  Sender: FDA-Public Use
  Company Number: PHHY2011JP72403

PATIENT
  Age: 88 Year
  Sex: Female

DRUGS (7)
  1. ASPIRIN [Concomitant]
     Dosage: UNK UKN, UNK
  2. AVAPRO [Concomitant]
     Dosage: UNK UKN, UNK
  3. RABEPRAZOLE SODIUM [Concomitant]
     Dosage: UNK UKN, UNK
  4. RIVASTIGMINE [Suspect]
     Indication: DEMENTIA ALZHEIMER'S TYPE
     Dosage: 4.5 MG/24 HOURS
     Route: 062
     Dates: start: 20110725, end: 20110810
  5. GLYSENNID [Concomitant]
     Dosage: UNK UKN, UNK
  6. MEMARY [Concomitant]
     Indication: DEMENTIA ALZHEIMER'S TYPE
     Dosage: UNK UKN, UNK
  7. REZALTAS [Concomitant]
     Dosage: UNK UKN, UNK

REACTIONS (3)
  - URINARY RETENTION [None]
  - ABDOMINAL DISTENSION [None]
  - DYSURIA [None]
